FAERS Safety Report 7044997-2 (Version None)
Quarter: 2010Q4

REPORT INFORMATION
  Report Type: 
  Country: None (occurrence: None)
  Receive Date: 20101014
  Receipt Date: 20101006
  Transmission Date: 20110411
  Serious: Yes (Hospitalization, Other)
  Sender: FDA-Public Use
  Company Number: US-SANOFI-AVENTIS-2010SA054146

PATIENT
  Age: 86 Year
  Sex: Male
  Weight: 74.3 kg

DRUGS (6)
  1. PLAVIX [Suspect]
     Route: 048
     Dates: start: 20080501, end: 20100628
  2. ASPIRIN [Concomitant]
     Indication: STENT PLACEMENT
     Dates: start: 20080401
  3. ENALAPRIL MALEATE [Concomitant]
     Indication: BLOOD PRESSURE
     Dates: start: 20080401
  4. PANTOPRAZOLE [Concomitant]
  5. TYLENOL [Concomitant]
     Indication: PAIN
  6. CARAFATE [Concomitant]
     Indication: ULCER
     Dosage: DOSE:4 TEASPOON(S)
     Dates: start: 20100728

REACTIONS (1)
  - MALIGNANT MELANOMA [None]
